FAERS Safety Report 8160702-0 (Version None)
Quarter: 2012Q1

REPORT INFORMATION
  Report Type: 
  Country: None (occurrence: None)
  Receive Date: 20120223
  Receipt Date: 20120213
  Transmission Date: 20120608
  Serious: Yes (Other)
  Sender: FDA-Public Use
  Company Number: PHHO2012DE003062

PATIENT

DRUGS (1)
  1. MYCOPHENOLIC ACID [Suspect]
     Indication: RENAL TRANSPLANT

REACTIONS (1)
  - HAEMATOMA [None]
